FAERS Safety Report 19545794 (Version 1)
Quarter: 2021Q3

REPORT INFORMATION
  Report Type: Spontaneous
  Country: NO (occurrence: NO)
  Receive Date: 20210714
  Receipt Date: 20210714
  Transmission Date: 20211014
  Serious: Yes (Other)
  Sender: FDA-Public Use
  Company Number: NVSC2021NO154484

PATIENT
  Age: 75 Year
  Sex: Male

DRUGS (2)
  1. TRILEPTAL [Suspect]
     Active Substance: OXCARBAZEPINE
     Indication: NERVE INJURY
  2. TRILEPTAL [Suspect]
     Active Substance: OXCARBAZEPINE
     Indication: OSTEITIS
     Dosage: 150 MG, BID, IN MORNING AND EVENING
     Route: 065

REACTIONS (3)
  - Syncope [Recovered/Resolved]
  - Product use in unapproved indication [Unknown]
  - Dizziness [Recovered/Resolved]
